FAERS Safety Report 8874479 (Version 1)
Quarter: 2012Q4

REPORT INFORMATION
  Report Type: Report from Study
  Country: GB (occurrence: GB)
  Receive Date: 20121023
  Receipt Date: 20121023
  Transmission Date: 20130627
  Serious: Yes (Death)
  Sender: FDA-Public Use
  Company Number: GB-ASTRAZENECA-2012SE80708

PATIENT
  Age: 75 Year
  Sex: Male

DRUGS (10)
  1. ESOMEPRAZOLE [Suspect]
     Indication: BARRETT^S OESOPHAGUS
     Route: 048
     Dates: start: 20081031, end: 201208
  2. ASPIRIN [Suspect]
     Indication: BARRETT^S OESOPHAGUS
     Route: 048
     Dates: start: 20081031, end: 2009
  3. ASPIRIN [Suspect]
     Indication: TRANSIENT ISCHAEMIC ATTACK
     Route: 048
     Dates: start: 20081031, end: 2009
  4. ASPIRIN [Suspect]
     Indication: BARRETT^S OESOPHAGUS
     Dosage: 75 MG (LOW DOSE)
     Route: 048
     Dates: end: 20120814
  5. ASPIRIN [Suspect]
     Indication: TRANSIENT ISCHAEMIC ATTACK
     Dosage: 75 MG (LOW DOSE)
     Route: 048
     Dates: end: 20120814
  6. PERINDOPRIL [Concomitant]
  7. FRUSEMIDE [Concomitant]
  8. DIPYRIDOMOLE [Concomitant]
  9. SIMVASTATIN [Concomitant]
  10. DOXAZOSIN [Concomitant]

REACTIONS (1)
  - Gastrointestinal haemorrhage [Fatal]
